FAERS Safety Report 5901999-4 (Version None)
Quarter: 2008Q3

REPORT INFORMATION
  Report Type: 
  Country: None (occurrence: None)
  Receive Date: 20080909
  Receipt Date: 20080603
  Transmission Date: 20090109
  Serious: Yes (Other)
  Sender: FDA-Public Use
  Company Number: US-WYE-H04376608

PATIENT
  Age: 73 Year
  Sex: Female
  Weight: 68.1 kg

DRUGS (4)
  1. ADVIL [Suspect]
     Indication: BACK PAIN
     Dosage: 1 TABLET 2X PER 1 DAY, ORAL
     Route: 048
     Dates: start: 20080501, end: 20080602
  2. PREMARIN [Concomitant]
  3. VALIUM [Concomitant]
  4. PROTONIX [Concomitant]

REACTIONS (2)
  - DRY MOUTH [None]
  - OEDEMA MOUTH [None]
